FAERS Safety Report 11639029 (Version 2)
Quarter: 2015Q4

REPORT INFORMATION
  Report Type: Report from Study
  Country: CA (occurrence: CA)
  Receive Date: 20151018
  Receipt Date: 20151120
  Transmission Date: 20160304
  Serious: Yes (Other)
  Sender: FDA-Public Use
  Company Number: CA-AMGEN-CANSL2015107423

PATIENT
  Age: 70 Year
  Sex: Female
  Weight: 72.56 kg

DRUGS (2)
  1. CALCIUM/VITAMIN D                  /01204201/ [Concomitant]
     Dosage: 500MG/400 UI, QD
  2. PROLIA [Suspect]
     Active Substance: DENOSUMAB
     Indication: OSTEOPOROSIS POSTMENOPAUSAL
     Dosage: 60 MG, Q6MO
     Route: 058
     Dates: start: 20140609

REACTIONS (2)
  - Breast haemorrhage [Unknown]
  - Breast mass [Unknown]

NARRATIVE: CASE EVENT DATE: 20140719
